FAERS Safety Report 5085686-3 (Version None)
Quarter: 2006Q3

REPORT INFORMATION
  Report Type: 
  Country: None (occurrence: None)
  Receive Date: 20060822
  Receipt Date: 20060811
  Transmission Date: 20061208
  Serious: Yes (Other)
  Sender: FDA-Public Use
  Company Number: CA-JNJFOC-20060602689

PATIENT
  Sex: Male

DRUGS (8)
  1. DURAGESIC-100 [Suspect]
     Route: 062
  2. DURAGESIC-100 [Suspect]
     Route: 062
  3. DURAGESIC-100 [Suspect]
     Indication: PAIN
     Route: 062
  4. SERAX [Concomitant]
     Indication: INSOMNIA
     Dosage: 30MG, HS, PRN
  5. LOSEC [Concomitant]
     Indication: ULCER
  6. SENOKOT [Concomitant]
     Indication: CONSTIPATION
     Dosage: AS NEEDED
  7. FLOVENT [Concomitant]
     Indication: ASTHMA
     Dosage: 2 PUFFS IN AM AND 2 PUFFS IN PM
     Route: 055
  8. ALBUTEROL SPIROS [Concomitant]
     Indication: ASTHMA
     Dosage: 2 PUFFS BID
     Route: 055

REACTIONS (9)
  - APPLICATION SITE INFLAMMATION [None]
  - APPLICATION SITE MASS [None]
  - BREAKTHROUGH PAIN [None]
  - HYPERHIDROSIS [None]
  - HYPOKINESIA [None]
  - INSOMNIA [None]
  - OEDEMA PERIPHERAL [None]
  - SKIN BURNING SENSATION [None]
  - SUBMANDIBULAR MASS [None]
